FAERS Safety Report 16731827 (Version 1)
Quarter: 2019Q3

REPORT INFORMATION
  Report Type: Spontaneous
  Country: IT (occurrence: IT)
  Receive Date: 20190822
  Receipt Date: 20190822
  Transmission Date: 20191005
  Serious: Yes (Hospitalization)
  Sender: FDA-Public Use
  Company Number: IT-TEVA-2019-IT-1094875

PATIENT
  Age: 51 Year
  Sex: Male

DRUGS (7)
  1. RAMIPRIL RATIOPHARM 5 MG COMPRESSE [Concomitant]
     Indication: CARDIAC FAILURE
     Route: 048
     Dates: start: 20190624, end: 20190704
  2. METFORMINA TEVA 500 MG COMPRESSE RIVESTITE CON FILM [Suspect]
     Active Substance: METFORMIN HYDROCHLORIDE
     Indication: TYPE 2 DIABETES MELLITUS
     Route: 048
     Dates: start: 20190624, end: 20190706
  3. ATORVASTATINA DOC 80 MG COMPRESSE RIVESTITE CON FILM [Concomitant]
     Indication: HYPERCHOLESTEROLAEMIA
     Route: 048
     Dates: start: 20190624
  4. ACIDO ACETILSALICILICO TEVA ITALIA 100 MG COMPRESSE GASTRORESISTENTI [Concomitant]
     Indication: MYOCARDIAL INFARCTION
     Route: 048
     Dates: start: 20190624
  5. PANTOPRAZOLO TEVA ITALIA 20 MG COMPRESSE GASTRORESISTENTI [Concomitant]
     Indication: GASTRITIS
     Route: 048
     Dates: start: 20190624
  6. BRILIQUE 90 MG FILM-COATED TABLETS [Concomitant]
     Active Substance: TICAGRELOR
     Indication: ACUTE CORONARY SYNDROME
     Route: 048
     Dates: start: 20190624
  7. BISOPROLOLO SANDOZ 7,5 MG COMPRESSE RIVESTITE CON FILM [Concomitant]
     Indication: CARDIAC FAILURE
     Route: 048
     Dates: start: 20190624

REACTIONS (2)
  - Urticaria [Recovered/Resolved]
  - Cough [Recovered/Resolved]

NARRATIVE: CASE EVENT DATE: 20190703
